FAERS Safety Report 8368867-2 (Version None)
Quarter: 2012Q2

REPORT INFORMATION
  Report Type: 
  Country: None (occurrence: None)
  Receive Date: 20120516
  Receipt Date: 20120502
  Transmission Date: 20120825
  Serious: Yes (Life-Threatening, Hospitalization, Other)
  Sender: FDA-Public Use
  Company Number: IMP_05882_2012

PATIENT
  Age: 83 Year
  Sex: Female

DRUGS (3)
  1. IRBESARTAN AND HYDROCHLOROTHIAZIDE [Concomitant]
  2. METFORMIN HCL [Suspect]
     Indication: PRODUCT USED FOR UNKNOWN INDICATION
     Dosage: 1000 MG, TID
  3. ASPIRIN [Concomitant]

REACTIONS (12)
  - PROTHROMBIN LEVEL DECREASED [None]
  - COLD SWEAT [None]
  - PNEUMONIA [None]
  - ACUTE RESPIRATORY DISTRESS SYNDROME [None]
  - DEHYDRATION [None]
  - DISORIENTATION [None]
  - CONFUSIONAL STATE [None]
  - RENAL FAILURE ACUTE [None]
  - BLOOD PRESSURE DECREASED [None]
  - HEART RATE INCREASED [None]
  - HAEMODIALYSIS [None]
  - LACTIC ACIDOSIS [None]
